FAERS Safety Report 11335575 (Version 1)
Quarter: 2015Q3

REPORT INFORMATION
  Report Type: Report from Study
  Country: JP (occurrence: JP)
  Receive Date: 20150804
  Receipt Date: 20150804
  Transmission Date: 20151125
  Serious: Yes (Other)
  Sender: FDA-Public Use
  Company Number: JP-GLAXOSMITHKLINE INC.-JP2015JPN040417

PATIENT
  Age: 82 Year
  Sex: Male
  Weight: 52 kg

DRUGS (4)
  1. UNKNOWN DRUG [Concomitant]
     Active Substance: UNSPECIFIED INGREDIENT
     Indication: GASTROOESOPHAGEAL REFLUX DISEASE
     Dosage: UNK
  2. PAZOPANIB [Suspect]
     Active Substance: PAZOPANIB
     Indication: PLEOMORPHIC MALIGNANT FIBROUS HISTIOCYTOMA
     Dosage: 600 MG, QD
     Route: 048
     Dates: start: 20130703, end: 20140514
  3. UNKNOWN DRUG [Concomitant]
     Active Substance: UNSPECIFIED INGREDIENT
     Indication: HYPERTENSION
     Dosage: UNK
  4. PAZOPANIB [Suspect]
     Active Substance: PAZOPANIB
     Dosage: 600 MG, QD
     Dates: start: 20140611, end: 20140625

REACTIONS (4)
  - Hypoalbuminaemia [Recovered/Resolved]
  - Ascites [Recovering/Resolving]
  - Hypertension [Unknown]
  - Protein urine [Recovered/Resolved]

NARRATIVE: CASE EVENT DATE: 20140514
